FAERS Safety Report 9059312 (Version 2)
Quarter: 2013Q1

REPORT INFORMATION
  Report Type: Spontaneous
  Country: US (occurrence: US)
  Receive Date: 20130211
  Receipt Date: 20130219
  Transmission Date: 20140127
  Serious: Yes (Other)
  Sender: FDA-Public Use
  Company Number: US-ROCHE-GNE242323

PATIENT
  Age: 63 Year
  Sex: Female

DRUGS (12)
  1. XOLAIR [Suspect]
     Indication: ASTHMA
     Dosage: 300 MG, 1/MONTH
     Route: 042
  2. DICLOFENAC [Suspect]
     Indication: OSTEOARTHRITIS
     Route: 065
  3. MONTELUKAST [Concomitant]
  4. ALBUTEROL [Concomitant]
  5. CROMOLYN [Concomitant]
  6. BECLOMETHASONE DIPROPIONATE [Concomitant]
     Route: 065
  7. CETIRIZINE HYDROCHLORIDE [Concomitant]
  8. FLUTICASONE [Concomitant]
  9. ESOMEPRAZOLE [Concomitant]
  10. LISINOPRIL [Concomitant]
  11. HYDROCHLOROTHIAZIDE [Concomitant]
  12. ATORVASTATIN [Concomitant]

REACTIONS (2)
  - Lichen planus [Unknown]
  - Hypersensitivity [Unknown]
